FAERS Safety Report 19278917 (Version 2)
Quarter: 2021Q3

REPORT INFORMATION
  Report Type: Spontaneous
  Country: JP (occurrence: JP)
  Receive Date: 20210520
  Receipt Date: 20210712
  Transmission Date: 20211014
  Serious: Yes (Congenital Anomaly)
  Sender: FDA-Public Use
  Company Number: JP-ASTELLAS-2021JP008961

PATIENT

DRUGS (4)
  1. PROGRAF [Suspect]
     Active Substance: TACROLIMUS
     Indication: TAKAYASU^S ARTERITIS
     Route: 064
     Dates: start: 20150319, end: 20150520
  2. PROGRAF [Suspect]
     Active Substance: TACROLIMUS
     Route: 064
     Dates: start: 20150521, end: 20150701
  3. PROGRAF [Suspect]
     Active Substance: TACROLIMUS
     Indication: TAKAYASU^S ARTERITIS
     Dosage: 0.5 MG, TWICE DAILY
     Route: 064
     Dates: start: 20150702
  4. PROGRAF [Suspect]
     Active Substance: TACROLIMUS
     Route: 064
     Dates: start: 20150702

REACTIONS (1)
  - Low birth weight baby [Unknown]

NARRATIVE: CASE EVENT DATE: 20181214
